FAERS Safety Report 4469492-6 (Version None)
Quarter: 2004Q4

REPORT INFORMATION
  Report Type: 
  Country: None (occurrence: None)
  Receive Date: 20041005
  Receipt Date: 20041005
  Transmission Date: 20050328
  Serious: Yes (Hospitalization)
  Sender: FDA-Public Use
  Company Number: None

PATIENT
  Sex: Male

DRUGS (6)
  1. CEFOTETAN [Suspect]
     Indication: PREOPERATIVE CARE
  2. PRAZOSIN HCL [Concomitant]
  3. ATENOLOL [Concomitant]
  4. LISINOPRIL [Concomitant]
  5. RABEPRAZOLE SODIUM [Concomitant]
  6. GABAPENTIN [Concomitant]

REACTIONS (2)
  - CEREBROVASCULAR ACCIDENT [None]
  - PROCEDURAL HYPOTENSION [None]
